FAERS Safety Report 11865344 (Version 2)
Quarter: 2015Q4

REPORT INFORMATION
  Report Type: Spontaneous
  Country: BR (occurrence: BR)
  Receive Date: 20151223
  Receipt Date: 20151223
  Transmission Date: 20160305
  Serious: Yes (Other)
  Sender: FDA-Public Use
  Company Number: BR-BAYER-2015-491397

PATIENT
  Age: 38 Year
  Sex: Male

DRUGS (4)
  1. ASPIRIN. [Suspect]
     Active Substance: ASPIRIN
     Dosage: 1 DF, QD
     Route: 048
     Dates: start: 20151211
  2. CLOPIDOGREL [Suspect]
     Active Substance: CLOPIDOGREL BISULFATE
     Dosage: UNK
     Route: 048
  3. XARELTO [Suspect]
     Active Substance: RIVAROXABAN
     Indication: CEREBROVASCULAR ACCIDENT PROPHYLAXIS
  4. XARELTO [Suspect]
     Active Substance: RIVAROXABAN
     Indication: ATRIAL THROMBOSIS
     Dosage: 1 DF, QD
     Route: 048
     Dates: start: 20151211

REACTIONS (3)
  - Off label use [None]
  - Cardiac ventricular thrombosis [None]
  - Cardiac ventricular thrombosis [None]

NARRATIVE: CASE EVENT DATE: 201509
